FAERS Safety Report 23638805 (Version 1)
Quarter: 2024Q1

REPORT INFORMATION
  Report Type: Spontaneous
  Country: AU (occurrence: AU)
  Receive Date: 20240315
  Receipt Date: 20240315
  Transmission Date: 20240409
  Serious: Yes (Other)
  Sender: FDA-Public Use
  Company Number: AU-WOODWARD-2024-AU-000160

PATIENT
  Age: 64 Year
  Sex: Female

DRUGS (7)
  1. RABEPRAZOLE SODIUM [Suspect]
     Active Substance: RABEPRAZOLE SODIUM
     Indication: Product used for unknown indication
     Dosage: (20 MILLIGRAM(S)); FREQUENCY UNKNOWN
     Route: 048
  2. BISOPROLOL [Suspect]
     Active Substance: BISOPROLOL\BISOPROLOL FUMARATE
     Dosage: 2.5 MILLIGRAM(S) (5 MILLIGRAM(S), 1 IN 2 DAY)
  3. ENTRESTO [Suspect]
     Active Substance: SACUBITRIL\VALSARTAN
     Dosage: (1 IN 2 DAY); 49/50 MG
  4. ATORVASTATIN [Suspect]
     Active Substance: ATORVASTATIN
     Dosage: 80.0 MILLIGRAM(S) (80 MILLIGRAM(S), 1 IN 1 DAY)
  5. AMITRIPTYLINE [Concomitant]
     Active Substance: AMITRIPTYLINE
     Dosage: (25 MILLIGRAM(S)); UNKNOWN FREQUENCY
  6. ASPIRIN [Concomitant]
     Active Substance: ASPIRIN
     Dosage: 100.0 MILLIGRAM(S) (100 MILLIGRAM(S), 1 IN 1 DAY)
  7. DIGOXIN [Concomitant]
     Active Substance: DIGOXIN
     Dosage: (1 IN 1 DAY); 0.5 UNIT UNKNOWN

REACTIONS (12)
  - Iron deficiency [Unknown]
  - Pulmonary mass [Unknown]
  - Radiculopathy [Unknown]
  - Spinal osteoarthritis [Unknown]
  - Mitral valve incompetence [Unknown]
  - Ischaemic cardiomyopathy [Unknown]
  - Left ventricular dilatation [Unknown]
  - Left ventricular dysfunction [Unknown]
  - Ejection fraction decreased [Unknown]
  - Aortic dilatation [Unknown]
  - Left atrial dilatation [Unknown]
  - Dyslipidaemia [Unknown]

NARRATIVE: CASE EVENT DATE: 20210301
